FAERS Safety Report 13007990 (Version 1)
Quarter: 2016Q4

REPORT INFORMATION
  Report Type: Spontaneous
  Country: US (occurrence: US)
  Receive Date: 20161208
  Receipt Date: 20161208
  Transmission Date: 20170207
  Serious: Yes (Hospitalization)
  Sender: FDA-Public Use
  Company Number: US-BEH-2016075834

PATIENT
  Sex: Female
  Weight: 65.76 kg

DRUGS (23)
  1. PROAIR HFA [Concomitant]
     Active Substance: ALBUTEROL SULFATE
  2. BUMETANIDE. [Concomitant]
     Active Substance: BUMETANIDE
  3. ASPIRIN. [Concomitant]
     Active Substance: ASPIRIN
  4. METOPROLOL TARTRATE. [Concomitant]
     Active Substance: METOPROLOL TARTRATE
  5. OMEPRAZOLE SODIUM [Concomitant]
     Active Substance: OMEPRAZOLE SODIUM
  6. LEVOTHYROXINE. [Concomitant]
     Active Substance: LEVOTHYROXINE
  7. ROPINIROLE. [Concomitant]
     Active Substance: ROPINIROLE
  8. MAGNESIUM [Concomitant]
     Active Substance: MAGNESIUM
  9. EPIPEN [Concomitant]
     Active Substance: EPINEPHRINE
  10. ATORVASTATIN [Concomitant]
     Active Substance: ATORVASTATIN
  11. SIMVASTATIN. [Concomitant]
     Active Substance: SIMVASTATIN
  12. DIPHENHYDRAMINE. [Concomitant]
     Active Substance: DIPHENHYDRAMINE
  13. ELIQUIS [Concomitant]
     Active Substance: APIXABAN
  14. FLUTICASONE FUROATE [Concomitant]
     Active Substance: FLUTICASONE FUROATE
  15. PROBIOTIC                          /06395501/ [Concomitant]
     Active Substance: BIFIDOBACTERIUM ANIMALIS SUBSP. LACTIS
  16. TRAMADOL. [Concomitant]
     Active Substance: TRAMADOL
  17. HIZENTRA [Suspect]
     Active Substance: HUMAN IMMUNOGLOBULIN G
     Indication: IMMUNODEFICIENCY COMMON VARIABLE
     Dosage: 10 G, UNK
     Route: 058
     Dates: start: 20160316
  18. METOLAZONE. [Concomitant]
     Active Substance: METOLAZONE
  19. POTASSIUM CHLORIDE. [Concomitant]
     Active Substance: POTASSIUM CHLORIDE
  20. ACETAMINOPHEN. [Concomitant]
     Active Substance: ACETAMINOPHEN
  21. TESTOSTERONE. [Concomitant]
     Active Substance: TESTOSTERONE
  22. ISOSORBIDE. [Concomitant]
     Active Substance: ISOSORBIDE
  23. ACETAMINOPHEN AND CODEINE [Concomitant]
     Active Substance: ACETAMINOPHEN\CODEINE PHOSPHATE

REACTIONS (2)
  - Ulcer [Unknown]
  - Ulcer haemorrhage [Unknown]
